FAERS Safety Report 8838809 (Version 1)
Quarter: 2012Q4

REPORT INFORMATION
  Report Type: 
  Country: GB (occurrence: GB)
  Receive Date: 20121014
  Receipt Date: 20121014
  Transmission Date: 20130627
  Serious: Yes (Other)
  Sender: FDA-Public Use
  Company Number: GB-TEVA-363157ISR

PATIENT
  Age: 70 Year
  Sex: Male

DRUGS (3)
  1. CLOPIDOGREL [Suspect]
     Dosage: Morning dose
     Dates: start: 2011
  2. DOXAZOSIN [Interacting]
     Dosage: Evening dose
     Dates: start: 2009
  3. ASPIRIN [Concomitant]

REACTIONS (4)
  - Drug interaction [Unknown]
  - Drug ineffective [Recovering/Resolving]
  - Contusion [Unknown]
  - Epistaxis [Unknown]
